FAERS Safety Report 7541025-7 (Version None)
Quarter: 2011Q2

REPORT INFORMATION
  Report Type: 
  Country: None (occurrence: None)
  Receive Date: 20110610
  Receipt Date: 20100608
  Transmission Date: 20111010
  Serious: No
  Sender: FDA-Public Use
  Company Number: A0863769A

PATIENT
  Sex: Male

DRUGS (2)
  1. NO CONCURRENT MEDICATION [Concomitant]
  2. ALTABAX [Suspect]
     Indication: POSTOPERATIVE WOUND INFECTION
     Dosage: 1PCT SINGLE DOSE
     Route: 061
     Dates: start: 20100607

REACTIONS (5)
  - APPLICATION SITE IRRITATION [None]
  - APPLICATION SITE PAIN [None]
  - SLEEP DISORDER [None]
  - APPLICATION SITE ERYTHEMA [None]
  - ADVERSE DRUG REACTION [None]
